FAERS Safety Report 9200851 (Version 2)
Quarter: 2014Q1

REPORT INFORMATION
  Report Type: Spontaneous
  Country: IT (occurrence: IT)
  Receive Date: 20130401
  Receipt Date: 20140314
  Transmission Date: 20141002
  Serious: Yes (Other)
  Sender: FDA-Public Use
  Company Number: IT-ACCORD-016974

PATIENT
  Age: 79 Year
  Sex: Male

DRUGS (3)
  1. IRINOTECAN [Suspect]
     Indication: COLON CANCER METASTATIC
     Route: 042
     Dates: start: 20121014, end: 20121114
  2. FLUOROURACIL [Suspect]
     Indication: COLON CANCER METASTATIC
     Route: 042
     Dates: start: 20121014, end: 20121114
  3. ERBITUX [Concomitant]
     Indication: COLON CANCER METASTATIC
     Dates: start: 20121014, end: 20130124

REACTIONS (2)
  - Hyperbilirubinaemia [Recovered/Resolved]
  - Hepatic failure [Recovered/Resolved]
